FAERS Safety Report 7595239-0 (Version None)
Quarter: 2011Q3

REPORT INFORMATION
  Report Type: 
  Country: None (occurrence: None)
  Receive Date: 20110707
  Receipt Date: 20110630
  Transmission Date: 20111222
  Serious: Yes (Hospitalization)
  Sender: FDA-Public Use
  Company Number: US-SANOFI-AVENTIS-2011SA042435

PATIENT
  Age: 85 Year
  Sex: Female

DRUGS (4)
  1. LANTUS [Suspect]
     Indication: TYPE 2 DIABETES MELLITUS
     Dosage: EVERY MORNING DOSE:53 UNIT(S)
     Route: 058
     Dates: start: 20101101
  2. HUMALOG [Suspect]
     Route: 065
     Dates: start: 20101101
  3. CRESTOR [Concomitant]
     Indication: BLOOD PRESSURE
  4. SOLOSTAR [Suspect]
     Indication: TYPE 2 DIABETES MELLITUS
     Dates: start: 20101101

REACTIONS (1)
  - EYE EXCISION [None]
